FAERS Safety Report 6719679-4 (Version None)
Quarter: 2010Q2

REPORT INFORMATION
  Report Type: 
  Country: None (occurrence: None)
  Receive Date: 20100507
  Receipt Date: 20100422
  Transmission Date: 20101027
  Serious: Yes (Hospitalization)
  Sender: FDA-Public Use
  Company Number: 2010S1000107-002

PATIENT
  Age: 76 Year
  Sex: Female

DRUGS (6)
  1. PITAVASTATIN [Suspect]
     Dosage: 2MG/DAY, PO
     Route: 048
     Dates: start: 20050121, end: 20090104
  2. PITAVASTATIN [Suspect]
     Dosage: 2MG/DAY, PO
     Route: 048
     Dates: start: 20090113
  3. CANDESARTAN CILEXETIL [Concomitant]
  4. TRICHLORMETHIAZIDE [Concomitant]
  5. AMLODIPINE BESYLATE [Concomitant]
  6. GLIMEPIRIDE [Concomitant]

REACTIONS (1)
  - DIZZINESS [None]
